FAERS Safety Report 21664537 (Version 1)
Quarter: 2022Q4

REPORT INFORMATION
  Report Type: Spontaneous
  Country: US (occurrence: None)
  Receive Date: 20221129
  Receipt Date: 20221129
  Transmission Date: 20230113
  Serious: Yes (Hospitalization)
  Sender: FDA-Public Use
  Company Number: None

PATIENT
  Age: 45 Year
  Sex: Female

DRUGS (15)
  1. AMBRISENTAN [Suspect]
     Active Substance: AMBRISENTAN
     Indication: Pulmonary hypertension
     Dosage: FREQUENCY : DAILY;?
     Route: 048
     Dates: start: 20190628
  2. TADALAFIL [Suspect]
     Active Substance: TADALAFIL
  3. TREPROSTINIL [Suspect]
     Active Substance: TREPROSTINIL
  4. PREDNISONE [Concomitant]
     Active Substance: PREDNISONE
  5. DIGOXIN [Concomitant]
     Active Substance: DIGOXIN
  6. FAMOTIDINE [Concomitant]
     Active Substance: FAMOTIDINE
  7. ONDANSETRON [Concomitant]
     Active Substance: ONDANSETRON
  8. SPIRONOLACTONE [Concomitant]
     Active Substance: SPIRONOLACTONE
  9. LEFLUNOMIDE [Concomitant]
     Active Substance: LEFLUNOMIDE
  10. TYLENOL [Concomitant]
     Active Substance: ACETAMINOPHEN
  11. POTASSIUM CHLORIDE [Concomitant]
     Active Substance: POTASSIUM CHLORIDE
  12. FUROSEMIDE [Concomitant]
     Active Substance: FUROSEMIDE
  13. LOPERAMIDE [Concomitant]
     Active Substance: LOPERAMIDE
  14. VITAMIN D3 [Concomitant]
     Active Substance: CHOLECALCIFEROL
  15. timolol opht drop [Concomitant]

REACTIONS (1)
  - Device related infection [None]

NARRATIVE: CASE EVENT DATE: 20221125
